FAERS Safety Report 6064347-8 (Version None)
Quarter: 2009Q1

REPORT INFORMATION
  Report Type: 
  Country: None (occurrence: None)
  Receive Date: 20090203
  Receipt Date: 20090203
  Transmission Date: 20090719
  Serious: Yes (Other)
  Sender: FDA-Public Use
  Company Number: None

PATIENT
  Age: 60 Year
  Sex: Male
  Weight: 104.4 kg

DRUGS (1)
  1. SITAGLIPTIN [Suspect]
     Indication: TYPE 2 DIABETES MELLITUS
     Dosage: 100MG EVERY DAY PO
     Route: 048
     Dates: start: 20080417, end: 20090105

REACTIONS (2)
  - RESPIRATORY DISORDER [None]
  - RHINITIS [None]
